FAERS Safety Report 10360462 (Version 1)
Quarter: 2014Q3

REPORT INFORMATION
  Report Type: Spontaneous
  Country: IN (occurrence: IN)
  Receive Date: 20140804
  Receipt Date: 20140804
  Transmission Date: 20150326
  Serious: Yes (Hospitalization)
  Sender: FDA-Public Use
  Company Number: PHHY2014IN092556

PATIENT
  Age: 21 Year
  Sex: Male

DRUGS (6)
  1. DIAZEPAM. [Suspect]
     Active Substance: DIAZEPAM
     Route: 042
  2. PHENOBARBITONE [Concomitant]
     Active Substance: PHENOBARBITAL
     Indication: GENERALISED TONIC-CLONIC SEIZURE
     Dosage: 60 MG, BID
  3. VALPROIC ACID. [Suspect]
     Active Substance: VALPROIC ACID
     Indication: CONVULSION
     Dosage: 200 MG, BID
  4. LEVOTHYROXINE [Concomitant]
     Active Substance: LEVOTHYROXINE
     Indication: PRIMARY HYPOTHYROIDISM
     Dosage: 200 UG, DAILY
  5. VALPROIC ACID. [Suspect]
     Active Substance: VALPROIC ACID
     Dosage: 400 MG, BID
  6. CLOBAZAM [Concomitant]
     Active Substance: CLOBAZAM
     Dosage: 10 MG, BID

REACTIONS (7)
  - Somnolence [Recovering/Resolving]
  - Speech disorder [Recovering/Resolving]
  - Sensory disturbance [Recovering/Resolving]
  - Disorientation [Recovering/Resolving]
  - Toxic encephalopathy [Recovering/Resolving]
  - Drug ineffective [Unknown]
  - Gait disturbance [Recovering/Resolving]
